FAERS Safety Report 20044949 (Version 1)
Quarter: 2021Q4

REPORT INFORMATION
  Report Type: Spontaneous
  Country: AU (occurrence: AU)
  Receive Date: 20211108
  Receipt Date: 20211108
  Transmission Date: 20220303
  Serious: Yes (Other)
  Sender: FDA-Public Use
  Company Number: AU-TGA-0000577465

PATIENT
  Age: 36 Year
  Sex: Female

DRUGS (3)
  1. CALDOLOR [Suspect]
     Active Substance: IBUPROFEN
     Route: 042
     Dates: start: 20210525, end: 20210525
  2. PROPOFOL [Concomitant]
     Active Substance: PROPOFOL
     Route: 042
     Dates: start: 20210525, end: 20210525
  3. ACETAMINOPHEN [Concomitant]
     Active Substance: ACETAMINOPHEN
     Route: 042
     Dates: start: 20210525, end: 20210525

REACTIONS (1)
  - Thrombophlebitis [Unknown]

NARRATIVE: CASE EVENT DATE: 20210530
